FAERS Safety Report 4899578-3 (Version None)
Quarter: 2006Q1

REPORT INFORMATION
  Report Type: 
  Country: None (occurrence: None)
  Receive Date: 20060130
  Receipt Date: 20060113
  Transmission Date: 20060701
  Serious: Yes (Other)
  Sender: FDA-Public Use
  Company Number: 2006-BP-00408RO

PATIENT
  Age: 62 Year
  Sex: Female

DRUGS (6)
  1. LITHIUM CARBONATE [Suspect]
     Indication: BIPOLAR DISORDER
  2. MIRTAZAPINE [Suspect]
     Indication: BIPOLAR DISORDER
  3. L-THYROXINE (LEVOTHYROXINE SODIUM) [Concomitant]
  4. ENALAPRIL MALEATE [Concomitant]
  5. LORAZEPAM [Concomitant]
  6. THIOPENTAL SODIUM [Concomitant]

REACTIONS (3)
  - ANTIPSYCHOTIC DRUG LEVEL BELOW THERAPEUTIC [None]
  - SEROTONIN SYNDROME [None]
  - THERAPY NON-RESPONDER [None]
